FAERS Safety Report 21558285 (Version 3)
Quarter: 2022Q4

REPORT INFORMATION
  Report Type: Report from Study
  Country: DE (occurrence: None)
  Receive Date: 20221107
  Receipt Date: 20221212
  Transmission Date: 20230113
  Serious: Yes (Hospitalization)
  Sender: FDA-Public Use
  Company Number: DE-ROCHE-3212394

PATIENT
  Age: 54 Year
  Sex: Male

DRUGS (5)
  1. ATEZOLIZUMAB [Suspect]
     Active Substance: ATEZOLIZUMAB
     Indication: Glioblastoma
     Dosage: ON 24/AUG/2022, LAST ADMINISTRATION PRIOR TO SAE ONSET.
     Route: 041
     Dates: start: 20220511
  2. LEVETIRACETAM [Concomitant]
     Active Substance: LEVETIRACETAM
     Dosage: LAST DOSE ADMINISTERED PRIOR TO SAE ON /MAY/2022.
     Route: 048
     Dates: start: 20220126
  3. LEVETIRACETAM [Concomitant]
     Active Substance: LEVETIRACETAM
     Dosage: LAST DOSE ADMINISTERED PRIOR TO SAE ON 1/NOV/2022
     Route: 048
     Dates: start: 20220601
  4. LORAZEPAM [Concomitant]
     Active Substance: LORAZEPAM
     Dosage: LAST DOSE ADMINISTERED PRIOR TO SAE ON FEB/2022.
     Route: 048
     Dates: start: 20220126
  5. LACOSAMIDE [Concomitant]
     Active Substance: LACOSAMIDE
     Dosage: LAST DOSE ADMINISTERED PRIOR TO SAE ON MAY/2022.
     Route: 048
     Dates: start: 20220126

REACTIONS (1)
  - Disorientation [Recovered/Resolved]

NARRATIVE: CASE EVENT DATE: 20221101
